FAERS Safety Report 5175970-7 (Version None)
Quarter: 2006Q4

REPORT INFORMATION
  Report Type: 
  Country: None (occurrence: None)
  Receive Date: 20061215
  Receipt Date: 20060707
  Transmission Date: 20070319
  Serious: No
  Sender: FDA-Public Use
  Company Number: US-AMGEN-KDL185711

PATIENT
  Sex: Male

DRUGS (2)
  1. ENBREL [Suspect]
     Indication: RHEUMATOID ARTHRITIS
     Route: 058
     Dates: start: 20060528
  2. METHOTREXATE [Concomitant]
     Route: 048
     Dates: start: 20040101

REACTIONS (5)
  - ASTHENIA [None]
  - MUSCULOSKELETAL STIFFNESS [None]
  - PAIN IN EXTREMITY [None]
  - PRURITUS GENERALISED [None]
  - RASH PAPULAR [None]
